FAERS Safety Report 6786615-4 (Version None)
Quarter: 2010Q2

REPORT INFORMATION
  Report Type: 
  Country: None (occurrence: None)
  Receive Date: 20100623
  Receipt Date: 20100615
  Transmission Date: 20101027
  Serious: Yes (Death, Life-Threatening)
  Sender: FDA-Public Use
  Company Number: JP-BAYER-200914924BYL

PATIENT
  Age: 77 Year
  Sex: Female
  Weight: 32 kg

DRUGS (2)
  1. NEXAVAR [Suspect]
     Indication: HEPATIC NEOPLASM MALIGNANT
     Dosage: TOTAL DAILY DOSE: 800 MG  UNIT DOSE: 200 MG
     Route: 048
     Dates: start: 20091028, end: 20091119
  2. OXYCONTIN [Concomitant]
     Indication: CANCER PAIN
     Dosage: UNIT DOSE: 5 MG
     Route: 048
     Dates: start: 20091023

REACTIONS (2)
  - HEPATIC NEOPLASM MALIGNANT [None]
  - INTERSTITIAL LUNG DISEASE [None]
